FAERS Safety Report 4278832-2 (Version None)
Quarter: 2004Q1

REPORT INFORMATION
  Report Type: 
  Country: None (occurrence: None)
  Receive Date: 20040126
  Receipt Date: 20040114
  Transmission Date: 20041129
  Serious: Yes (Hospitalization, Other)
  Sender: FDA-Public Use
  Company Number: JP-BRISTOL-MYERS SQUIBB COMPANY-12478905

PATIENT
  Age: 57 Year
  Sex: Female

DRUGS (4)
  1. NEUROLITE [Suspect]
     Indication: CEREBROVASCULAR STENOSIS
     Route: 042
     Dates: start: 20030917, end: 20030917
  2. NEUROLITE [Suspect]
     Indication: CEREBRAL INFARCTION
     Route: 042
     Dates: start: 20030917, end: 20030917
  3. LIPITOR [Suspect]
     Indication: HYPERLIPIDAEMIA
     Route: 048
     Dates: start: 20030917, end: 20030917
  4. ASPIRIN [Suspect]
     Indication: CEREBRAL INFARCTION
     Route: 048
     Dates: start: 20030917, end: 20030917

REACTIONS (8)
  - BLOOD PRESSURE DECREASED [None]
  - DRUG ERUPTION [None]
  - DYSPNOEA [None]
  - HYPERSENSITIVITY [None]
  - PHARYNGEAL OEDEMA [None]
  - PRURITUS [None]
  - RASH GENERALISED [None]
  - URTICARIA [None]
